FAERS Safety Report 17671561 (Version 1)
Quarter: 2020Q2

REPORT INFORMATION
  Report Type: Report from Study
  Country: ES (occurrence: ES)
  Receive Date: 20200415
  Receipt Date: 20200415
  Transmission Date: 20200713
  Serious: Yes (Life-Threatening, Hospitalization, Other)
  Sender: FDA-Public Use
  Company Number: ES-MYLANLABS-2020M1038226

PATIENT
  Age: 53 Year
  Sex: Female

DRUGS (6)
  1. PREGABALINA [Concomitant]
     Active Substance: PREGABALIN
     Indication: BORDERLINE PERSONALITY DISORDER
     Dosage: UNK
     Route: 048
  2. QUETIAPINE. [Suspect]
     Active Substance: QUETIAPINE
     Indication: PRODUCT USED FOR UNKNOWN INDICATION
     Dosage: 6 GRAM, TOTAL
     Route: 048
     Dates: start: 20191011, end: 20191011
  3. RIVOTRIL [Interacting]
     Active Substance: CLONAZEPAM
     Indication: PRODUCT USED FOR UNKNOWN INDICATION
     Dosage: 16 MILLIGRAM, TOTAL
     Route: 048
     Dates: start: 20191011, end: 20191011
  4. QUETIAPINA                         /01270901/ [Concomitant]
     Active Substance: QUETIAPINE
     Indication: BORDERLINE PERSONALITY DISORDER
     Dosage: 150 MILLIGRAM, QD
     Route: 048
     Dates: end: 20191010
  5. ESCITALOPRAM [Concomitant]
     Active Substance: ESCITALOPRAM OXALATE
     Indication: BORDERLINE PERSONALITY DISORDER
     Dosage: 20 MILLIGRAM, QD
     Route: 048
  6. RIVOTRIL [Concomitant]
     Active Substance: CLONAZEPAM
     Indication: BORDERLINE PERSONALITY DISORDER
     Dosage: 8 MILLIGRAM, QD
     Route: 048
     Dates: end: 20191010

REACTIONS (5)
  - Drug interaction [Unknown]
  - Suicide attempt [Unknown]
  - Respiratory depression [Recovered/Resolved]
  - Coma [Recovered/Resolved]
  - Intentional overdose [Recovered/Resolved]

NARRATIVE: CASE EVENT DATE: 20191011
